FAERS Safety Report 6088633-0 (Version None)
Quarter: 2009Q1

REPORT INFORMATION
  Report Type: 
  Country: None (occurrence: None)
  Receive Date: 20090218
  Receipt Date: 20090218
  Transmission Date: 20090719
  Serious: Yes (Life-Threatening)
  Sender: FDA-Public Use
  Company Number: None

PATIENT
  Sex: Female
  Weight: 67.1324 kg

DRUGS (2)
  1. CELEBREX [Suspect]
     Indication: ARTHRALGIA
     Dosage: ONE CAPSULE 2 TIMES PER DAY PO
     Route: 048
     Dates: start: 20080829, end: 20080916
  2. CELEBREX [Suspect]
     Indication: BACK PAIN
     Dosage: ONE CAPSULE 2 TIMES PER DAY PO
     Route: 048
     Dates: start: 20080829, end: 20080916

REACTIONS (2)
  - HAEMATOCHEZIA [None]
  - HAEMORRHAGE [None]
